FAERS Safety Report 5527629-1 (Version None)
Quarter: 2007Q4

REPORT INFORMATION
  Report Type: 
  Country: None (occurrence: None)
  Receive Date: 20071126
  Receipt Date: 20071126
  Transmission Date: 20080405
  Serious: No
  Sender: FDA-Public Use
  Company Number: None

PATIENT
  Age: 71 Year
  Sex: Female

DRUGS (1)
  1. SYSTANE (OTC) [Suspect]

REACTIONS (5)
  - CELLULITIS [None]
  - EYE INFECTION [None]
  - POOR QUALITY DRUG ADMINISTERED [None]
  - STENOTROPHOMONAS INFECTION [None]
  - THERAPEUTIC PRODUCT CONTAMINATION [None]
